FAERS Safety Report 4685040-X (Version None)
Quarter: 2005Q2

REPORT INFORMATION
  Report Type: 
  Country: None (occurrence: None)
  Receive Date: 20050531
  Receipt Date: 20050209
  Transmission Date: 20051028
  Serious: No
  Sender: FDA-Public Use
  Company Number: WAES 0502USA00987

PATIENT
  Age: 75 Year
  Sex: Female

DRUGS (8)
  1. ZETIA [Suspect]
     Indication: BLOOD CHOLESTEROL INCREASED
     Dosage: 10 MG/DAILY/PO
     Route: 048
     Dates: start: 20050201
  2. ACTOS [Concomitant]
  3. ASCORBIC ACID [Concomitant]
  4. ASPIRIN [Concomitant]
  5. CALCIUM GLUCONATE [Concomitant]
  6. DIGOXIN [Concomitant]
  7. VERAPAMIL [Concomitant]
  8. VITAMINS [Concomitant]

REACTIONS (2)
  - JOINT SWELLING [None]
  - MUSCLE SPASMS [None]
